FAERS Safety Report 4432440-9 (Version None)
Quarter: 2004Q3

REPORT INFORMATION
  Report Type: 
  Country: None (occurrence: None)
  Receive Date: 20040820
  Receipt Date: 20040809
  Transmission Date: 20050211
  Serious: Yes (Death)
  Sender: FDA-Public Use
  Company Number: 2004AP04027

PATIENT
  Age: 55 Year
  Sex: Male

DRUGS (2)
  1. IRESSA [Suspect]
     Dosage: 250 MG DAILY PO
     Route: 048
     Dates: start: 20030813
  2. RADIATION THERAPY [Concomitant]

REACTIONS (3)
  - DISEASE RECURRENCE [None]
  - PNEUMONIA [None]
  - STAPHYLOCOCCAL INFECTION [None]
